FAERS Safety Report 8360957-3 (Version None)
Quarter: 2012Q2

REPORT INFORMATION
  Report Type: 
  Country: None (occurrence: None)
  Receive Date: 20120515
  Receipt Date: 20120510
  Transmission Date: 20120825
  Serious: Yes (Hospitalization)
  Sender: FDA-Public Use
  Company Number: FR-ROCHE-1042294

PATIENT
  Sex: Female

DRUGS (2)
  1. MABTHERA [Suspect]
     Indication: LYMPHOMA
     Route: 042
     Dates: start: 20110721, end: 20110922
  2. MABTHERA [Suspect]
     Route: 042
     Dates: start: 20110922

REACTIONS (6)
  - PYREXIA [None]
  - T-CELL LYMPHOMA [None]
  - LYMPHOPENIA [None]
  - NEURALGIA [None]
  - SKIN INFECTION [None]
  - RASH [None]
